FAERS Safety Report 6257383-X (Version None)
Quarter: 2009Q3

REPORT INFORMATION
  Report Type: 
  Country: None (occurrence: None)
  Receive Date: 20090706
  Receipt Date: 20090630
  Transmission Date: 20100115
  Serious: Yes (Other)
  Sender: FDA-Public Use
  Company Number: US-JNJCH-2009018077

PATIENT
  Age: 55 Year
  Sex: Female
  Weight: 117.9 kg

DRUGS (3)
  1. FRESHBURST LISTERINE [Suspect]
     Indication: DENTAL DISORDER PROPHYLAXIS
     Dosage: TEXT:1/2 CAP ONCE A DAY
     Route: 048
     Dates: start: 20090621, end: 20090623
  2. INSULIN [Concomitant]
     Indication: DIABETES MELLITUS
     Dosage: TEXT:1 40UNITS DAILY
     Route: 065
  3. GLUCOPHAGE [Concomitant]
     Indication: DIABETES MELLITUS
     Dosage: TEXT:1000MG TWICE DAILY
     Route: 065

REACTIONS (4)
  - AGEUSIA [None]
  - APPLICATION SITE BURN [None]
  - GLOSSODYNIA [None]
  - PRODUCT QUALITY ISSUE [None]
